FAERS Safety Report 14598516 (Version 1)
Quarter: 2018Q1

REPORT INFORMATION
  Report Type: Spontaneous
  Country: US (occurrence: US)
  Receive Date: 20180302
  Receipt Date: 20180302
  Transmission Date: 20180509
  Serious: Yes (Other)
  Sender: FDA-Public Use
  Company Number: None

PATIENT
  Age: 41 Year
  Sex: Female
  Weight: 81 kg

DRUGS (8)
  1. VITAMIN D [Concomitant]
     Active Substance: CHOLECALCIFEROL
  2. XYZAL ALLERGY 24HR [Suspect]
     Active Substance: LEVOCETIRIZINE DIHYDROCHLORIDE
     Indication: MULTIPLE ALLERGIES
     Dosage: QUANTITY:35 TABLET(S); AT BEDTIME?
     Route: 048
     Dates: start: 20180220, end: 20180301
  3. LIOTHRIONIN [Concomitant]
  4. IBUPROFEN. [Concomitant]
     Active Substance: IBUPROFEN
  5. ENBREL [Concomitant]
     Active Substance: ETANERCEPT
  6. NATURE-THOID [Concomitant]
  7. MAGNESIUM [Concomitant]
     Active Substance: MAGNESIUM
  8. CURCUMIN [Concomitant]
     Active Substance: CURCUMIN

REACTIONS (5)
  - Hypersomnia [None]
  - Myalgia [None]
  - Depression [None]
  - Irritability [None]
  - Dizziness [None]

NARRATIVE: CASE EVENT DATE: 20180301
